FAERS Safety Report 11683382 (Version 1)
Quarter: 2015Q4

REPORT INFORMATION
  Report Type: Spontaneous
  Country: AR (occurrence: AR)
  Receive Date: 20151029
  Receipt Date: 20151029
  Transmission Date: 20160304
  Serious: Yes (Other)
  Sender: FDA-Public Use
  Company Number: AR-PFIZER INC-2015355572

PATIENT
  Age: 55 Year
  Sex: Male

DRUGS (2)
  1. INLYTA [Suspect]
     Active Substance: AXITINIB
     Dosage: 5 MG, DAILY
     Dates: start: 20151017
  2. INLYTA [Suspect]
     Active Substance: AXITINIB
     Indication: RENAL CANCER
     Dosage: 5 MG, DAILY
     Dates: start: 20150305

REACTIONS (7)
  - Blood pressure decreased [Unknown]
  - Decreased appetite [Unknown]
  - Disorientation [Unknown]
  - Disease progression [Unknown]
  - Loss of consciousness [Unknown]
  - Renal cancer [Unknown]
  - Time perception altered [Unknown]

NARRATIVE: CASE EVENT DATE: 20151009
